FAERS Safety Report 22226105 (Version 1)
Quarter: 2023Q2

REPORT INFORMATION
  Report Type: Report from Study
  Country: US (occurrence: US)
  Receive Date: 20230419
  Receipt Date: 20230419
  Transmission Date: 20230721
  Serious: Yes (Hospitalization)
  Sender: FDA-Public Use
  Company Number: US-GBT-021680

PATIENT
  Age: 46 Year
  Sex: Male

DRUGS (9)
  1. OXBRYTA [Suspect]
     Active Substance: VOXELOTOR
     Indication: Sickle cell disease
     Dates: start: 20230201, end: 20230302
  2. ZYLOPRIM [Concomitant]
     Active Substance: ALLOPURINOL
     Indication: Joint swelling
     Route: 048
     Dates: start: 20230112
  3. HYDROMORPHONE [Concomitant]
     Active Substance: HYDROMORPHONE
     Indication: Sickle cell disease
     Route: 048
     Dates: start: 20190405
  4. cholecalciferol, vitamin D3 [Concomitant]
     Indication: Sickle cell disease
     Dosage: DOSAGE: 2000 U
     Route: 048
     Dates: start: 20190405
  5. HYDROXYUREA [Concomitant]
     Active Substance: HYDROXYUREA
     Indication: Sickle cell disease
     Route: 048
     Dates: start: 20160724
  6. folic acid (FOLVITE) [Concomitant]
     Indication: Sickle cell disease
     Route: 048
     Dates: start: 20160724
  7. ELIQUIS [Concomitant]
     Active Substance: APIXABAN
     Route: 048
     Dates: start: 20210507
  8. DIOVAN [Concomitant]
     Active Substance: VALSARTAN
     Route: 048
     Dates: start: 20230222
  9. fluticasone propionate (FLONASE [Concomitant]
     Indication: Multiple allergies
     Dosage: 1 SPRAY EVERY DAY
     Route: 045
     Dates: start: 20180207

REACTIONS (2)
  - Acute chest syndrome [Recovered/Resolved]
  - Sickle cell anaemia with crisis [Recovered/Resolved]

NARRATIVE: CASE EVENT DATE: 20230303
